FAERS Safety Report 18357227 (Version 1)
Quarter: 2020Q4

REPORT INFORMATION
  Report Type: Spontaneous
  Country: GB (occurrence: GB)
  Receive Date: 20201007
  Receipt Date: 20201007
  Transmission Date: 20210114
  Serious: Yes (Other)
  Sender: FDA-Public Use
  Company Number: GB-MYLANLABS-2020M1084291

PATIENT
  Age: 45 Year
  Sex: Female
  Weight: 64 kg

DRUGS (6)
  1. DOXYCYCLINE. [Suspect]
     Active Substance: DOXYCYCLINE
     Indication: PRODUCT USED FOR UNKNOWN INDICATION
     Dosage: 100 MILLIGRAM (TWO NOW THEN ONE DAILY)
     Dates: start: 20200827
  2. DOSULEPIN HYDROCHLORIDE [Concomitant]
     Active Substance: DOTHIEPIN HYDROCHLORIDE
     Dosage: 1 DOSAGE FORM, QD (NIGHT)
     Dates: start: 20200109
  3. COCODAMOL [Concomitant]
     Active Substance: ACETAMINOPHEN\CODEINE PHOSPHATE
     Dosage: UNK UNK, QID (TAKE 1 OR 2 4 TIMES/DAY-MAXIMUM 8/DAY SPARINGLY)
     Dates: start: 20200205
  4. FEXOFENADINE [Concomitant]
     Active Substance: FEXOFENADINE HYDROCHLORIDE
     Dosage: 1 DOSAGE FORM, QD
     Dates: start: 20200618, end: 20200817
  5. ESOMEPRAZOLE. [Concomitant]
     Active Substance: ESOMEPRAZOLE MAGNESIUM
     Dosage: 2 DOSAGE FORM, QD
     Dates: start: 20190925
  6. BACLOFEN. [Concomitant]
     Active Substance: BACLOFEN
     Dosage: 1.5 DOSAGE FORM, QD
     Dates: start: 20200109

REACTIONS (3)
  - Dyspnoea [Unknown]
  - Swollen tongue [Recovered/Resolved]
  - Vomiting [Unknown]

NARRATIVE: CASE EVENT DATE: 20200904
